FAERS Safety Report 6088630-5 (Version None)
Quarter: 2009Q1

REPORT INFORMATION
  Report Type: 
  Country: None (occurrence: None)
  Receive Date: 20090218
  Receipt Date: 20090218
  Transmission Date: 20090719
  Serious: Yes (Other)
  Sender: FDA-Public Use
  Company Number: None

PATIENT
  Age: 33 Year
  Sex: Female
  Weight: 59.8748 kg

DRUGS (2)
  1. YAZ [Suspect]
     Indication: CONTRACEPTION
     Dosage: 28 DAY PACK DAILY PO  3/08 EKG  3/08  ULTRA SOUND
     Route: 048
     Dates: start: 20070405, end: 20080120
  2. . [Concomitant]

REACTIONS (5)
  - ADVERSE DRUG REACTION [None]
  - EXTRASYSTOLES [None]
  - FEAR [None]
  - PALPITATIONS [None]
  - SLEEP DISORDER DUE TO GENERAL MEDICAL CONDITION, INSOMNIA TYPE [None]
